FAERS Safety Report 13367472 (Version 1)
Quarter: 2017Q1

REPORT INFORMATION
  Report Type: Spontaneous
  Country: US (occurrence: US)
  Receive Date: 20170324
  Receipt Date: 20170324
  Transmission Date: 20170429
  Serious: Yes (Other)
  Sender: FDA-Public Use
  Company Number: US-CIPLA LTD.-2017US01984

PATIENT

DRUGS (1)
  1. BUPROPION HYDROCHLORIDE XL [Suspect]
     Active Substance: BUPROPION HYDROCHLORIDE
     Dosage: UNK
     Route: 065

REACTIONS (7)
  - Depression [Unknown]
  - Mood swings [Unknown]
  - Depressed level of consciousness [Unknown]
  - Product substitution issue [Unknown]
  - Anxiety [Unknown]
  - Headache [Unknown]
  - Feeling jittery [Unknown]
